FAERS Safety Report 5218198-4 (Version None)
Quarter: 2007Q1

REPORT INFORMATION
  Report Type: 
  Country: None (occurrence: None)
  Receive Date: 20061130
  Receipt Date: 20060728
  Transmission Date: 20070707
  Serious: Yes (Other)
  Sender: FDA-Public Use
  Company Number: US200603000251

PATIENT
  Age: 50 Year
  Sex: Female
  Weight: 104.3 kg

DRUGS (4)
  1. ZYPREXA [Suspect]
     Dosage: SEE IMAGE
     Route: 048
     Dates: start: 19990602
  2. ZYPREXA [Suspect]
     Dosage: SEE IMAGE
     Route: 048
     Dates: start: 20010804
  3. ZYPREXA ZYDIS [Suspect]
     Dosage: 10 MG, ORAL
     Route: 048
     Dates: start: 20031231
  4. PAROXETINE HCL [Concomitant]

REACTIONS (4)
  - DIABETES MELLITUS [None]
  - HYPERGLYCAEMIA [None]
  - PANCREATITIS [None]
  - WEIGHT INCREASED [None]
